FAERS Safety Report 23182027 (Version 2)
Quarter: 2024Q1

REPORT INFORMATION
  Report Type: Other
  Country: US (occurrence: None)
  Receive Date: 20231114
  Receipt Date: 20240101
  Transmission Date: 20240410
  Serious: Yes (Other)
  Sender: FDA-Public Use
  Company Number: US-ROCHE-3454301

PATIENT
  Age: 61 Year
  Sex: Female

DRUGS (2)
  1. ERIVEDGE [Suspect]
     Active Substance: VISMODEGIB
     Indication: Congenital anomaly
     Dosage: TAKE 1 CAPSULE BY MOUTH DAILY
     Route: 048
  2. ERIVEDGE [Suspect]
     Active Substance: VISMODEGIB
     Indication: Loeys-Dietz syndrome

REACTIONS (2)
  - Skin cancer [Recovering/Resolving]
  - Off label use [Unknown]
